FAERS Safety Report 6876878-9 (Version None)
Quarter: 2010Q2

REPORT INFORMATION
  Report Type: 
  Country: None (occurrence: None)
  Receive Date: 20100616
  Receipt Date: 20100324
  Transmission Date: 20101027
  Serious: No
  Sender: FDA-Public Use
  Company Number: DSA_42847_2010

PATIENT
  Sex: Female
  Weight: 27.2158 kg

DRUGS (3)
  1. XENAZINE [Suspect]
     Indication: HUNTINGTON'S CHOREA
     Dosage: HALF OF A 12.5 MG TABLET BID ORAL
     Route: 048
     Dates: start: 20100302
  2. PROLIXIN [Suspect]
     Indication: TIC
     Dosage: 2.5 MG BID ORAL, 2.5 MG QD, DOSE WAS TAPERED FROM 2.5 MG BID TO 2.5 MG QD ON UNKNOWN DATE ORAL
     Route: 048
     Dates: end: 20100417
  3. PROLIXIN [Suspect]
     Indication: TIC
     Dosage: 2.5 MG BID ORAL, 2.5 MG QD, DOSE WAS TAPERED FROM 2.5 MG BID TO 2.5 MG QD ON UNKNOWN DATE ORAL
     Route: 048
     Dates: start: 20090421

REACTIONS (2)
  - DRUG ADMINISTRATION ERROR [None]
  - EXCESSIVE EYE BLINKING [None]
